FAERS Safety Report 18363642 (Version 2)
Quarter: 2020Q4

REPORT INFORMATION
  Report Type: Spontaneous
  Country: NL (occurrence: NL)
  Receive Date: 20201009
  Receipt Date: 20201102
  Transmission Date: 20210114
  Serious: Yes (Other)
  Sender: FDA-Public Use
  Company Number: NL-SA-2020SA277510

PATIENT

DRUGS (17)
  1. METFORMIN [Concomitant]
     Active Substance: METFORMIN HYDROCHLORIDE
     Dosage: 500 MG, Q12H
     Route: 048
  2. ZOCOR [Concomitant]
     Active Substance: SIMVASTATIN
     Dosage: 20 MG, QD (ORALLY, FOR THE NIGHT)
     Route: 048
  3. FUCIDIN [FUSIDIC ACID] [Concomitant]
     Active Substance: FUSIDIC ACID
     Dosage: 1 DF, Q8H (USE 3 TIMES A DAY ON THE SKIN LIP)
  4. ATROPINE. [Concomitant]
     Active Substance: ATROPINE
     Dosage: 1 GTT DROPS, QD (1 DROP, LEFT EYE, 1DD)
  5. AVAMYS [Concomitant]
     Active Substance: FLUTICASONE FUROATE
     Dosage: 2 DF, QD (2 SPRAY, NASAL, ZN 1DD)
     Route: 045
  6. ATROVENT [Concomitant]
     Active Substance: IPRATROPIUM BROMIDE
     Dosage: 2 DF, QID (20MCG / DO AEROSOL, 2 INHALATIONS, PER INHALATION, 4DD)
     Route: 055
  7. FOSTER [Concomitant]
     Active Substance: BECLOMETHASONE\FORMOTEROL
     Dosage: 2 DF, QD (2 INHALATIONS, PER INHALATION, 2DD)
     Route: 055
  8. IBUPROFEN. [Concomitant]
     Active Substance: IBUPROFEN
     Dosage: 600 MG, TID
     Route: 048
  9. VENTOLIN [Concomitant]
     Active Substance: ALBUTEROL SULFATE
     Dosage: 2 DF, QID (2 INHALATION, PER INHALATION, ZN 4DD)
     Route: 055
  10. LEVOCETIRIZINE [Concomitant]
     Active Substance: LEVOCETIRIZINE
     Dosage: 5 MG, QD
     Route: 048
  11. IMOVANE [Concomitant]
     Active Substance: ZOPICLONE
     Dosage: 7.5 MG, QD (7.5 MG, ORALLY, ZN FOR THE NIGHT)
     Route: 048
  12. ACLASTA [Concomitant]
     Active Substance: ZOLEDRONIC ACID
     Dosage: 1 DF (1 X EVERY 12 MONTHS IN THE VEIN)
     Route: 042
  13. DUPILUMAB [Suspect]
     Active Substance: DUPILUMAB
     Indication: ASTHMA
     Dosage: 300 MG, QOW (300 MG PER 14 DAYS SC)
     Route: 058
     Dates: start: 201911
  14. COLECALCIFEROL [Concomitant]
     Active Substance: CHOLECALCIFEROL
     Dosage: 25000 IU/ML, Q4W (50000IE / ML ORAL SOLUTION, 0.5 ML, ORALLY, 1X / 4 WEEKS)
     Route: 048
  15. HYDROCORTISON [HYDROCORTISONE] [Concomitant]
     Dosage: 20 MG, QD
     Route: 048
  16. COMBIVENT [Concomitant]
     Active Substance: ALBUTEROL SULFATE\IPRATROPIUM BROMIDE
     Dosage: 2.5 ML, QID (2.5 ML, PER INHALATION, ZN 4DD)
     Route: 055
  17. HYDROCORTISON [HYDROCORTISONE] [Concomitant]
     Dosage: 7.5 MG, Q12H
     Route: 048

REACTIONS (3)
  - Blepharitis [Unknown]
  - Conjunctivitis [Unknown]
  - Iridocyclitis [Recovering/Resolving]
